FAERS Safety Report 10220550 (Version 1)
Quarter: 2014Q2

REPORT INFORMATION
  Report Type: Spontaneous
  Country: US (occurrence: None)
  Receive Date: 20140605
  Receipt Date: 20140605
  Transmission Date: 20141212
  Serious: Yes (Hospitalization, Disabling)
  Sender: FDA-Public Use
  Company Number: None

PATIENT
  Age: 50 Year
  Sex: Female
  Weight: 89.36 kg

DRUGS (7)
  1. FOSAMAX [Suspect]
     Indication: PROPHYLAXIS
     Route: 048
     Dates: start: 2007, end: 2011
  2. FOSAMAX [Suspect]
     Route: 048
     Dates: start: 2007, end: 2011
  3. LAMICTAL [Concomitant]
  4. CLONAZEPAM [Concomitant]
  5. HALODOL [Concomitant]
  6. SERTRALINE [Concomitant]
  7. ATORVASTATIN [Concomitant]

REACTIONS (2)
  - Femur fracture [None]
  - Fall [None]
